FAERS Safety Report 7280554-0 (Version None)
Quarter: 2011Q1

REPORT INFORMATION
  Report Type: 
  Country: None (occurrence: None)
  Receive Date: 20110208
  Receipt Date: 20110131
  Transmission Date: 20110831
  Serious: Yes (Other)
  Sender: FDA-Public Use
  Company Number: DE-SANOFI-AVENTIS-2011SA005838

PATIENT

DRUGS (1)
  1. CLOPIDOGREL BISULFATE [Suspect]
     Route: 065

REACTIONS (3)
  - NO THERAPEUTIC RESPONSE [None]
  - BRAIN STEM INFARCTION [None]
  - THROMBOSIS IN DEVICE [None]
